FAERS Safety Report 9132983 (Version 1)
Quarter: 2013Q1

REPORT INFORMATION
  Report Type: Report from Study
  Country: US (occurrence: US)
  Receive Date: 20130301
  Receipt Date: 20130301
  Transmission Date: 20140127
  Serious: Yes (Other)
  Sender: FDA-Public Use
  Company Number: US-ABBOTT-13P-163-1054183-00

PATIENT
  Age: 51 None
  Sex: Female
  Weight: 61.29 kg

DRUGS (3)
  1. HUMIRA [Suspect]
     Indication: RHEUMATOID ARTHRITIS
     Dates: end: 201204
  2. HUMIRA [Suspect]
     Dates: start: 201209, end: 20130207
  3. ARAVA [Concomitant]
     Indication: RHEUMATOID ARTHRITIS

REACTIONS (4)
  - Nasal septum deviation [Recovered/Resolved]
  - Sinusitis [Not Recovered/Not Resolved]
  - Drug ineffective [Not Recovered/Not Resolved]
  - Laryngitis [Not Recovered/Not Resolved]
